FAERS Safety Report 4656774-8 (Version None)
Quarter: 2005Q2

REPORT INFORMATION
  Report Type: 
  Country: None (occurrence: None)
  Receive Date: 20050506
  Receipt Date: 20050427
  Transmission Date: 20051028
  Serious: Yes (Hospitalization)
  Sender: FDA-Public Use
  Company Number: 2005SE02381

PATIENT
  Age: 83 Year
  Sex: Male

DRUGS (3)
  1. BLOPRESS [Suspect]
     Indication: HYPERTENSION
     Dosage: 12 MG QD PO
     Route: 048
     Dates: start: 20020320, end: 20050405
  2. CALSLOT [Concomitant]
  3. NORVASC [Concomitant]

REACTIONS (4)
  - BRADYCARDIA [None]
  - HYPERKALAEMIA [None]
  - ILL-DEFINED DISORDER [None]
  - SICK SINUS SYNDROME [None]
